FAERS Safety Report 4918152-3 (Version None)
Quarter: 2006Q1

REPORT INFORMATION
  Report Type: 
  Country: None (occurrence: None)
  Receive Date: 20060215
  Receipt Date: 20051117
  Transmission Date: 20060701
  Serious: No
  Sender: FDA-Public Use
  Company Number: MK200602-0135-1

PATIENT
  Age: 48 Year
  Sex: Male

DRUGS (1)
  1. ORAL SOLUTION THER [Suspect]
     Indication: THYROID GLAND CANCER
     Dosage: 635 MCI, 6 DOSES, PO
     Route: 048
     Dates: end: 19640101

REACTIONS (5)
  - INTERSTITIAL LUNG DISEASE [None]
  - LYMPHADENOPATHY [None]
  - METASTASES TO LYMPH NODES [None]
  - ONCOCYTOMA [None]
  - RESPIRATORY DISTRESS [None]
